FAERS Safety Report 25519814 (Version 1)
Quarter: 2025Q3

REPORT INFORMATION
  Report Type: Report from Study
  Country: CA (occurrence: CA)
  Receive Date: 20250704
  Receipt Date: 20250704
  Transmission Date: 20251020
  Serious: Yes (Other)
  Sender: ABBVIE
  Company Number: CA-ABBVIE-6352596

PATIENT
  Age: 20 Year
  Sex: Male

DRUGS (1)
  1. RINVOQ [Suspect]
     Active Substance: UPADACITINIB
     Indication: Colitis ulcerative
     Route: 048
     Dates: start: 20250624

REACTIONS (10)
  - Depressed level of consciousness [Unknown]
  - Abdominal pain [Unknown]
  - Pain [Unknown]
  - Fatigue [Unknown]
  - Fluid intake reduced [Unknown]
  - Pyrexia [Unknown]
  - Paraesthesia [Unknown]
  - Nausea [Unknown]
  - Abdominal tenderness [Unknown]
  - Headache [Unknown]

NARRATIVE: CASE EVENT DATE: 20250601
